FAERS Safety Report 5101223-9 (Version None)
Quarter: 2006Q3

REPORT INFORMATION
  Report Type: 
  Country: None (occurrence: None)
  Receive Date: 20060911
  Receipt Date: 20060829
  Transmission Date: 20061208
  Serious: Yes (Hospitalization)
  Sender: FDA-Public Use
  Company Number: 2006GB01534

PATIENT
  Sex: Female

DRUGS (2)
  1. ZOMIG [Suspect]
     Indication: MIGRAINE
     Route: 048
     Dates: start: 20010226, end: 20010226
  2. TETRACYCLINE [Concomitant]
     Route: 048

REACTIONS (6)
  - CHEST PAIN [None]
  - HEADACHE [None]
  - HYPOTENSION [None]
  - NECK PAIN [None]
  - TACHYCARDIA [None]
  - THROAT TIGHTNESS [None]
